FAERS Safety Report 9833091 (Version 1)
Quarter: 2014Q1

REPORT INFORMATION
  Report Type: Spontaneous
  Country: TR (occurrence: TR)
  Receive Date: 20140121
  Receipt Date: 20140121
  Transmission Date: 20141002
  Serious: Yes (Other)
  Sender: FDA-Public Use
  Company Number: TR-BAXTER-2014BAX002203

PATIENT
  Age: 19 Year
  Sex: Female

DRUGS (3)
  1. ENDOXAN 1G. IV [Suspect]
     Indication: TAKAYASU^S ARTERITIS
     Route: 065
  2. PREDNISOLONE [Concomitant]
     Indication: TAKAYASU^S ARTERITIS
     Route: 065
  3. DIPYRIDAMOLE [Concomitant]
     Indication: TAKAYASU^S ARTERITIS
     Route: 065

REACTIONS (1)
  - Aortic valve incompetence [Recovered/Resolved]
